FAERS Safety Report 23042487 (Version 1)
Quarter: 2023Q4

REPORT INFORMATION
  Report Type: Spontaneous
  Country: NO (occurrence: NO)
  Receive Date: 20231008
  Receipt Date: 20231008
  Transmission Date: 20240110
  Serious: Yes (Life-Threatening, Hospitalization, Other)
  Sender: FDA-Public Use
  Company Number: NO-EMA-DD-20181023-kumarvn_p-154408

PATIENT
  Age: 63 Year
  Sex: Female

DRUGS (11)
  1. HYDROCHLOROTHIAZIDE\TELMISARTAN [Suspect]
     Active Substance: HYDROCHLOROTHIAZIDE\TELMISARTAN
     Indication: Product used for unknown indication
     Dosage: 12.5/80 MG
  2. ASPIRIN\MAGNESIUM OXIDE [Suspect]
     Active Substance: ASPIRIN\MAGNESIUM OXIDE
     Indication: Product used for unknown indication
  3. WARFARIN SODIUM [Suspect]
     Active Substance: WARFARIN SODIUM
     Indication: Product used for unknown indication
     Dosage: 2.5 MG AFTER LIST
  4. ERYTHROMYCIN [Suspect]
     Active Substance: ERYTHROMYCIN
     Indication: Respiratory tract infection
  5. ATENOLOL [Suspect]
     Active Substance: ATENOLOL
     Indication: Product used for unknown indication
  6. FELODIPINE [Suspect]
     Active Substance: FELODIPINE
     Indication: Product used for unknown indication
     Dosage: ER
     Route: 048
  7. ISOPHANE INSULIN [Suspect]
     Active Substance: INSULIN NOS
     Indication: Product used for unknown indication
     Dosage: 18 + 16 IU
  8. GLUCOPHAGE [Suspect]
     Active Substance: METFORMIN HYDROCHLORIDE
     Indication: Product used for unknown indication
  9. NEURONTIN [Concomitant]
     Active Substance: GABAPENTIN
     Indication: Product used for unknown indication
  10. SIMVASTATIN [Concomitant]
     Active Substance: SIMVASTATIN
     Indication: Product used for unknown indication
  11. COUMADIN [Concomitant]
     Active Substance: WARFARIN SODIUM
     Indication: Product used for unknown indication
     Dosage: 2.5 MG AFTER LIST

REACTIONS (9)
  - Sinus bradycardia [Recovering/Resolving]
  - Hypoglycaemia [Recovering/Resolving]
  - Metabolic acidosis [Recovering/Resolving]
  - Hypotension [Recovering/Resolving]
  - Lactic acidosis [Recovering/Resolving]
  - Hypothermia [Recovering/Resolving]
  - Hyperkalaemia [Not Recovered/Not Resolved]
  - Acute kidney injury [Recovering/Resolving]
  - Drug interaction [Unknown]
